FAERS Safety Report 12589646 (Version 1)
Quarter: 2016Q3

REPORT INFORMATION
  Report Type: Spontaneous
  Country: ES (occurrence: ES)
  Receive Date: 20160725
  Receipt Date: 20160725
  Transmission Date: 20161109
  Serious: Yes (Hospitalization, Other)
  Sender: FDA-Public Use
  Company Number: ES-BAYER-2016-112832

PATIENT
  Age: 78 Year
  Sex: Male

DRUGS (1)
  1. NEXAVAR [Suspect]
     Active Substance: SORAFENIB
     Dosage: UNK
     Dates: start: 20160421, end: 2016

REACTIONS (8)
  - Abdominal injury [Recovering/Resolving]
  - Blood pressure increased [Recovering/Resolving]
  - Weight decreased [Recovering/Resolving]
  - Nipple pain [Recovering/Resolving]
  - Blood glucose increased [Recovering/Resolving]
  - Fluid retention [Recovering/Resolving]
  - Abdominal pain [Recovering/Resolving]
  - Occult blood positive [Recovering/Resolving]

NARRATIVE: CASE EVENT DATE: 201604
